FAERS Safety Report 9214077 (Version 1)
Quarter: 2013Q2

REPORT INFORMATION
  Report Type: Spontaneous
  Country: US (occurrence: US)
  Receive Date: 20130405
  Receipt Date: 20130405
  Transmission Date: 20140414
  Serious: No
  Sender: FDA-Public Use
  Company Number: US-PFIZER INC-2013107950

PATIENT
  Age: 55 Year
  Sex: Female
  Weight: 56.69 kg

DRUGS (4)
  1. NEURONTIN [Suspect]
     Indication: AFFECTIVE DISORDER
     Dosage: UNK
  2. NEURONTIN [Suspect]
     Indication: ANXIETY
  3. PROZAC [Concomitant]
     Dosage: 80 MG, UNK
  4. WELLBUTRIN [Concomitant]
     Dosage: 150 MG, UNK

REACTIONS (3)
  - Fall [Unknown]
  - Ligament rupture [Unknown]
  - Off label use [Unknown]
